FAERS Safety Report 25749419 (Version 1)
Quarter: 2025Q3

REPORT INFORMATION
  Report Type: Other
  Country: US (occurrence: US)
  Receive Date: 20250902
  Receipt Date: 20250902
  Transmission Date: 20251021
  Serious: Yes (Life-Threatening, Hospitalization)
  Sender: COREPHARMA LLC
  Company Number: US-CorePharma LLC-2183638

PATIENT
  Age: 19 Year
  Sex: Female

DRUGS (3)
  1. AMLODIPINE BESYLATE [Suspect]
     Active Substance: AMLODIPINE BESYLATE
     Indication: Product used for unknown indication
  2. HYDROXYZINE [Suspect]
     Active Substance: HYDROXYZINE HYDROCHLORIDE
  3. SOLIFENACIN SUCCINATE [Suspect]
     Active Substance: SOLIFENACIN SUCCINATE

REACTIONS (8)
  - Hypotension [Recovering/Resolving]
  - Intentional overdose [Unknown]
  - Hyperglycaemia [Recovering/Resolving]
  - Somnolence [Recovering/Resolving]
  - Blood lactic acid increased [Recovering/Resolving]
  - Oliguria [Recovering/Resolving]
  - Cardiac disorder [Recovering/Resolving]
  - Toxicity to various agents [Recovering/Resolving]
